FAERS Safety Report 13720004 (Version 1)
Quarter: 2017Q3

REPORT INFORMATION
  Report Type: Report from Study
  Country: US (occurrence: US)
  Receive Date: 20170705
  Receipt Date: 20170705
  Transmission Date: 20171127
  Serious: Yes (Other)
  Sender: FDA-Public Use
  Company Number: US-AMGEN-USASL2017099788

PATIENT
  Age: 58 Year
  Sex: Female

DRUGS (1)
  1. REPATHA [Suspect]
     Active Substance: EVOLOCUMAB
     Indication: HYPERCHOLESTEROLAEMIA
     Dosage: 140 MG, Q2WK
     Route: 065

REACTIONS (9)
  - Haemorrhage [Unknown]
  - Injection site pain [Unknown]
  - Visual impairment [Unknown]
  - Injection site bruising [Unknown]
  - Eye haemorrhage [Unknown]
  - Contusion [Unknown]
  - Injection site haemorrhage [Unknown]
  - Arthropod sting [Unknown]
  - Drug dose omission [Unknown]
